FAERS Safety Report 18936306 (Version 1)
Quarter: 2021Q1

REPORT INFORMATION
  Report Type: Spontaneous
  Country: FR (occurrence: FR)
  Receive Date: 20210225
  Receipt Date: 20210225
  Transmission Date: 20210420
  Serious: Yes (Other)
  Sender: FDA-Public Use
  Company Number: FR-TEVA-2021-FR-1882307

PATIENT
  Age: 28 Year
  Sex: Female

DRUGS (10)
  1. METHOTREXATE. [Suspect]
     Active Substance: METHOTREXATE
     Indication: PROPHYLAXIS AGAINST GRAFT VERSUS HOST DISEASE
     Route: 065
  2. METHOTREXATE. [Suspect]
     Active Substance: METHOTREXATE
     Indication: GRAFT VERSUS HOST DISEASE IN SKIN
  3. IMATINIB. [Suspect]
     Active Substance: IMATINIB MESYLATE
     Indication: GRAFT VERSUS HOST DISEASE IN SKIN
     Route: 065
  4. RITUXIMAB. [Suspect]
     Active Substance: RITUXIMAB
     Indication: GRAFT VERSUS HOST DISEASE IN SKIN
     Route: 065
  5. MYCOPHENOLATE MOFETIL. [Suspect]
     Active Substance: MYCOPHENOLATE MOFETIL
     Indication: GRAFT VERSUS HOST DISEASE IN SKIN
     Route: 065
  6. CICLOSPORIN [Suspect]
     Active Substance: CYCLOSPORINE
     Indication: PROPHYLAXIS AGAINST GRAFT VERSUS HOST DISEASE
     Route: 065
  7. PREDNISONE. [Suspect]
     Active Substance: PREDNISONE
     Dosage: 25 MILLIGRAM DAILY;
     Route: 048
  8. PREDNISONE. [Suspect]
     Active Substance: PREDNISONE
     Indication: GRAFT VERSUS HOST DISEASE IN SKIN
     Dosage: 50 MILLIGRAM DAILY;
     Route: 048
  9. TACROLIMUS. [Suspect]
     Active Substance: TACROLIMUS
     Indication: GRAFT VERSUS HOST DISEASE IN SKIN
     Route: 065
  10. INTERLEUKINE 2 (ALDESLEUKIN) [Suspect]
     Active Substance: ALDESLEUKIN
     Indication: GRAFT VERSUS HOST DISEASE IN SKIN
     Dosage: 1 MILLION IU/M2/DAY IN 8 WEEK CYCLES
     Route: 058

REACTIONS (7)
  - Drug ineffective [Unknown]
  - Steroid diabetes [Unknown]
  - Osteonecrosis [Unknown]
  - Pyrexia [Unknown]
  - Osteoporosis [Unknown]
  - Osteoporotic fracture [Unknown]
  - Myalgia [Unknown]
